FAERS Safety Report 16691333 (Version 2)
Quarter: 2019Q3

REPORT INFORMATION
  Report Type: Spontaneous
  Country: CZ (occurrence: CZ)
  Receive Date: 20190812
  Receipt Date: 20190905
  Transmission Date: 20191004
  Serious: Yes (Other)
  Sender: FDA-Public Use
  Company Number: CZ-AUROBINDO-AUR-APL-2019-052536

PATIENT

DRUGS (3)
  1. INSULIN [Concomitant]
     Active Substance: INSULIN NOS
     Indication: DIABETES MELLITUS
     Dosage: USUALLY 38 UNITS, SOMETIMES 36 UNITS AND PRANDIAL USUALLY 3X DAILY 13 UNITS
     Route: 065
  2. METFORMIN [Suspect]
     Active Substance: METFORMIN HYDROCHLORIDE
     Indication: TYPE 2 DIABETES MELLITUS
     Dosage: UNK
     Route: 048
  3. METFORMIN [Suspect]
     Active Substance: METFORMIN HYDROCHLORIDE
     Indication: DIABETES MELLITUS

REACTIONS (1)
  - Diabetes mellitus inadequate control [Recovering/Resolving]
